FAERS Safety Report 9610837 (Version 2)
Quarter: 2013Q4

REPORT INFORMATION
  Report Type: Spontaneous
  Country: US (occurrence: US)
  Receive Date: 20131009
  Receipt Date: 20131017
  Transmission Date: 20140711
  Serious: Yes (Hospitalization)
  Sender: FDA-Public Use
  Company Number: US-PFIZER INC-2013286633

PATIENT
  Age: 59 Year
  Sex: Male
  Weight: 87.53 kg

DRUGS (2)
  1. LIPITOR [Suspect]
     Indication: BLOOD CHOLESTEROL INCREASED
     Dosage: 20 MG, ONCE A DAY
     Route: 048
  2. PROTONIX [Suspect]
     Dosage: 40 MG, ONCE A DAY
     Route: 048

REACTIONS (3)
  - Mental disorder [Unknown]
  - General physical health deterioration [Unknown]
  - Self-injurious ideation [Unknown]
